FAERS Safety Report 4835294-1 (Version None)
Quarter: 2005Q4

REPORT INFORMATION
  Report Type: 
  Country: None (occurrence: None)
  Receive Date: 20051122
  Receipt Date: 20050822
  Transmission Date: 20060501
  Serious: Yes (Life-Threatening, Hospitalization)
  Sender: FDA-Public Use
  Company Number: JP-MERCK-0508USA03811

PATIENT
  Age: 84 Year
  Sex: Female

DRUGS (7)
  1. FOSAMAX [Suspect]
     Indication: OSTEOPOROSIS
     Route: 048
     Dates: start: 20050807, end: 20050808
  2. ETODOLAC [Concomitant]
     Indication: PAIN
     Route: 048
     Dates: start: 20050728
  3. SOLON [Concomitant]
     Indication: GASTRITIS
     Route: 048
     Dates: start: 20050801
  4. BLOPRESS [Concomitant]
     Indication: HYPERTENSION
     Route: 048
  5. NORVASC [Concomitant]
     Indication: HYPERTENSION
     Route: 048
  6. THYRADIN [Concomitant]
     Indication: HYPOTHYROIDISM
     Route: 048
  7. SELBEX [Concomitant]
     Route: 048

REACTIONS (2)
  - CONVULSION [None]
  - VOMITING [None]
